FAERS Safety Report 17109805 (Version 1)
Quarter: 2019Q4

REPORT INFORMATION
  Report Type: Spontaneous
  Country: US (occurrence: US)
  Receive Date: 20191204
  Receipt Date: 20191204
  Transmission Date: 20200122
  Serious: No
  Sender: FDA-Public Use
  Company Number: US-TEVA-2019-US-1147617

PATIENT
  Sex: Male

DRUGS (2)
  1. TADAFIL [Suspect]
     Active Substance: TADALAFIL
     Indication: BENIGN PROSTATIC HYPERPLASIA
     Route: 065
     Dates: start: 201908, end: 201910
  2. CIALIS [Suspect]
     Active Substance: TADALAFIL
     Route: 065

REACTIONS (3)
  - Condition aggravated [Not Recovered/Not Resolved]
  - Nocturia [Unknown]
  - Drug ineffective [Unknown]
